FAERS Safety Report 9835011 (Version 1)
Quarter: 2014Q1

REPORT INFORMATION
  Report Type: Spontaneous
  Country: ES (occurrence: ES)
  Receive Date: 20140122
  Receipt Date: 20140122
  Transmission Date: 20141002
  Serious: Yes (Other)
  Sender: FDA-Public Use
  Company Number: ES-PFIZER INC-2014019342

PATIENT
  Age: 35 Year
  Sex: Female

DRUGS (1)
  1. LYRICA [Suspect]
     Dosage: UNK
     Route: 048
     Dates: start: 20131029, end: 20131102

REACTIONS (3)
  - Insomnia [Recovered/Resolved]
  - Nervousness [Recovered/Resolved]
  - Herpes simplex [Recovered/Resolved]
